FAERS Safety Report 7576292-7 (Version None)
Quarter: 2011Q2

REPORT INFORMATION
  Report Type: 
  Country: None (occurrence: None)
  Receive Date: 20110623
  Receipt Date: 20110623
  Transmission Date: 20111010
  Serious: No
  Sender: FDA-Public Use
  Company Number: None

PATIENT
  Age: 79 Year
  Sex: Female

DRUGS (2)
  1. LIPITOR [Suspect]
     Dates: start: 20090819, end: 20091023
  2. BACTRIM [Suspect]
     Dates: start: 20090820, end: 20090821

REACTIONS (14)
  - IRRITABILITY [None]
  - INTERNATIONAL NORMALISED RATIO INCREASED [None]
  - HEPATIC FAILURE [None]
  - HEPATIC FIBROSIS [None]
  - HEPATITIS ACUTE [None]
  - PROTHROMBIN TIME PROLONGED [None]
  - RENAL FAILURE [None]
  - HEPATIC CYST [None]
  - EPISTAXIS [None]
  - ABNORMAL BEHAVIOUR [None]
  - MENTAL STATUS CHANGES [None]
  - RASH [None]
  - SUBDURAL HAEMATOMA [None]
  - MIXED LIVER INJURY [None]
